FAERS Safety Report 9841993 (Version 1)
Quarter: 2013Q4

REPORT INFORMATION
  Report Type: Spontaneous
  Country: US (occurrence: None)
  Receive Date: 20131219
  Receipt Date: 20131219
  Transmission Date: 20140711
  Serious: Yes (Other)
  Sender: FDA-Public Use
  Company Number: 163-20785-13051461

PATIENT
  Age: 79 Year
  Sex: Female

DRUGS (1)
  1. THALOMID (THALIDOMIDE) (100 MILLGRAM, CAPSULES) [Suspect]
     Indication: PLASMA CELL MYELOMA
     Dosage: 100 MG, 28 IN 28 D, PO
     Route: 048
     Dates: start: 201301

REACTIONS (2)
  - No therapeutic response [None]
  - Plasma cell myeloma [None]
